FAERS Safety Report 5936168-5 (Version None)
Quarter: 2008Q4

REPORT INFORMATION
  Report Type: 
  Country: None (occurrence: None)
  Receive Date: 20081028
  Receipt Date: 20081015
  Transmission Date: 20090506
  Serious: Yes (Other)
  Sender: FDA-Public Use
  Company Number: DSA_32464_2008

PATIENT
  Age: 44 Year
  Sex: Male

DRUGS (5)
  1. ENALAPRIL MALEATE [Suspect]
     Indication: HYPERTENSION
     Dosage: (2.5 MG QD ORAL)
     Route: 048
     Dates: start: 20060101
  2. NIFEDIPINE [Suspect]
     Indication: HYPERTENSION
     Dosage: (40 MG QD ORAL)
     Route: 048
     Dates: start: 20060101
  3. PROGRAF [Suspect]
     Indication: IMMUNOSUPPRESSION
     Dosage: (1 MG QD ORAL)
     Route: 048
     Dates: start: 20070701
  4. DIOVAN [Suspect]
     Indication: DRUG USE FOR UNKNOWN INDICATION
     Dosage: (40 MG QD ORAL), (80 MG QD ORAL), (40 MG QD ORAL)
     Route: 048
  5. PREDNISOLON /00016201/ [Concomitant]

REACTIONS (6)
  - GINGIVAL BLEEDING [None]
  - GINGIVAL DISORDER [None]
  - GINGIVAL HYPERPLASIA [None]
  - GINGIVITIS [None]
  - MYASTHENIA GRAVIS [None]
  - PERIODONTITIS [None]
